FAERS Safety Report 7203300-5 (Version None)
Quarter: 2010Q4

REPORT INFORMATION
  Report Type: 
  Country: None (occurrence: None)
  Receive Date: 20101230
  Receipt Date: 20070423
  Transmission Date: 20110411
  Serious: No
  Sender: FDA-Public Use
  Company Number: 2007BI009102

PATIENT
  Sex: Female

DRUGS (6)
  1. TYSABRI [Suspect]
     Indication: MULTIPLE SCLEROSIS
     Route: 042
     Dates: start: 20061128, end: 20070124
  2. AVONEX [Concomitant]
     Indication: MULTIPLE SCLEROSIS
     Route: 030
  3. ZANAFLEX [Concomitant]
     Indication: PAIN
  4. PROVIGIL [Concomitant]
     Indication: FATIGUE
  5. COPAXONE [Concomitant]
     Indication: MULTIPLE SCLEROSIS
  6. BETASERON [Concomitant]
     Indication: MULTIPLE SCLEROSIS

REACTIONS (12)
  - COGNITIVE DISORDER [None]
  - FATIGUE [None]
  - GASTROENTERITIS [None]
  - GASTROENTERITIS VIRAL [None]
  - HEADACHE [None]
  - HERPES DERMATITIS [None]
  - INFECTION [None]
  - PAIN [None]
  - PHARYNGITIS STREPTOCOCCAL [None]
  - PYREXIA [None]
  - STOMATITIS [None]
  - VIRAL INFECTION [None]
